FAERS Safety Report 8812488 (Version 2)
Quarter: 2012Q4

REPORT INFORMATION
  Report Type: 
  Country: US (occurrence: US)
  Receive Date: 20120927
  Receipt Date: 20121004
  Transmission Date: 20130627
  Serious: No
  Sender: FDA-Public Use
  Company Number: US-009507513-1209USA008322

PATIENT
  Sex: Female

DRUGS (1)
  1. MIRALAX [Suspect]
     Indication: CONSTIPATION
     Dosage: 17 g, qd
     Route: 048
     Dates: start: 20120703, end: 20120803

REACTIONS (3)
  - Drug ineffective [Unknown]
  - Expired drug administered [Unknown]
  - Incorrect drug administration duration [Unknown]
